FAERS Safety Report 14715853 (Version 2)
Quarter: 2018Q2

REPORT INFORMATION
  Report Type: Report from Study
  Country: US (occurrence: US)
  Receive Date: 20180404
  Receipt Date: 20180411
  Transmission Date: 20180711
  Serious: No
  Sender: FDA-Public Use
  Company Number: US-AMGEN-USASL2018038469

PATIENT
  Sex: Male

DRUGS (5)
  1. MIACALCIN [Concomitant]
     Active Substance: CALCITONIN SALMON
  2. PROLIA [Suspect]
     Active Substance: DENOSUMAB
     Indication: SPINAL OSTEOARTHRITIS
     Dosage: 60 MG, Q6MO
     Route: 058
  3. PROLIA [Suspect]
     Active Substance: DENOSUMAB
     Indication: RHEUMATOID ARTHRITIS
  4. CALCIUM [Concomitant]
     Active Substance: CALCIUM
  5. VITAMIN D [Concomitant]
     Active Substance: CHOLECALCIFEROL

REACTIONS (1)
  - Off label use [Unknown]
